FAERS Safety Report 6986394-1 (Version None)
Quarter: 2010Q3

REPORT INFORMATION
  Report Type: 
  Country: None (occurrence: None)
  Receive Date: 20100915
  Receipt Date: 20090701
  Transmission Date: 20110219
  Serious: No
  Sender: FDA-Public Use
  Company Number: US-WYE-H10000909

PATIENT
  Sex: Female

DRUGS (2)
  1. PRISTIQ [Suspect]
     Dosage: 50 MG, FREQUENCY UNSPECIFIED
     Route: 048
     Dates: start: 20090629, end: 20090629
  2. PRISTIQ [Suspect]
     Dosage: ONE HALF A TABLET
     Route: 048
     Dates: start: 20090630, end: 20090630

REACTIONS (2)
  - DIARRHOEA [None]
  - HEADACHE [None]
